FAERS Safety Report 20503312 (Version 1)
Quarter: 2022Q1

REPORT INFORMATION
  Report Type: Spontaneous
  Country: US (occurrence: None)
  Receive Date: 20220222
  Receipt Date: 20220222
  Transmission Date: 20220423
  Serious: Yes (Hospitalization)
  Sender: FDA-Public Use
  Company Number: None

PATIENT
  Sex: Female

DRUGS (3)
  1. AMBRISENTAN [Suspect]
     Active Substance: AMBRISENTAN
     Indication: Pulmonary hypertension
     Dosage: TAKE 1 TABLET (10 MG) BY MOUTH DAILY?
     Route: 048
     Dates: start: 20190924
  2. ADVAIR DISKU AER [Concomitant]
  3. BUMEX TAB [Concomitant]

REACTIONS (1)
  - Hospitalisation [None]
